FAERS Safety Report 12336320 (Version 1)
Quarter: 2016Q2

REPORT INFORMATION
  Report Type: Spontaneous
  Country: CA (occurrence: CA)
  Receive Date: 20160505
  Receipt Date: 20160505
  Transmission Date: 20160815
  Serious: Yes (Other)
  Sender: FDA-Public Use
  Company Number: CA-CIPLA LTD.-2016CA04384

PATIENT

DRUGS (4)
  1. IRINOTECAN [Suspect]
     Active Substance: IRINOTECAN
     Indication: COLORECTAL CANCER
     Dosage: UNK, PRIOR TO STUDY
     Route: 065
  2. IRINOTECAN [Interacting]
     Active Substance: IRINOTECAN
     Dosage: UNK, EVERY 3 WEEKS
     Route: 042
  3. OXALIPLATIN. [Suspect]
     Active Substance: OXALIPLATIN
     Indication: COLORECTAL CANCER
     Dosage: UNK, PRIOR TO STUDY
     Route: 065
  4. OLAPARIB [Interacting]
     Active Substance: OLAPARIB
     Indication: COLORECTAL CANCER
     Dosage: 50 MG, UNK
     Route: 048

REACTIONS (2)
  - Hyponatraemia [Unknown]
  - Drug interaction [Unknown]
